FAERS Safety Report 13048429 (Version 1)
Quarter: 2016Q4

REPORT INFORMATION
  Report Type: Spontaneous
  Country: ES (occurrence: ES)
  Receive Date: 20161221
  Receipt Date: 20161221
  Transmission Date: 20170207
  Serious: Yes (Other)
  Sender: FDA-Public Use
  Company Number: ES-009507513-1612ESP008083

PATIENT
  Age: 44 Year
  Sex: Female
  Weight: 70 kg

DRUGS (6)
  1. HIDROFEROL [Suspect]
     Active Substance: CALCIFEDIOL
     Indication: ARTHRITIS
     Dosage: 0.266 MG, EVERY TWO WEEKS, 10 DRINKABLE AMPOULES OF 1.5 ML
     Route: 048
     Dates: start: 201610
  2. TOUJEO [Suspect]
     Active Substance: INSULIN GLARGINE
     Indication: LATENT AUTOIMMUNE DIABETES IN ADULTS
     Dosage: 1.5 ML, QD, 300 UNITS/ML,PRE-FILLED PEN, 3 PEN
     Route: 030
     Dates: start: 201606
  3. PRAVAFENIX [Suspect]
     Active Substance: FENOFIBRATE\PRAVASTATIN
     Indication: BLOOD CHOLESTEROL INCREASED
     Dosage: 1 DF, QD, HARD CAPSULE, 30 CAPSULES
     Route: 048
     Dates: start: 201610
  4. JANUMET [Suspect]
     Active Substance: METFORMIN HYDROCHLORIDE\SITAGLIPTIN PHOSPHATE
     Indication: LATENT AUTOIMMUNE DIABETES IN ADULTS
     Dosage: 2 DF, QD, 56 TABLETS
     Route: 048
     Dates: start: 201404
  5. METOJECT [Suspect]
     Active Substance: METHOTREXATE SODIUM
     Indication: RHEUMATOID ARTHRITIS
     Dosage: 15 MG, QW, 15 MG/0.30 ML, PRE-FILLED PEN, 1
     Route: 030
     Dates: start: 201604
  6. EUTIROX [Suspect]
     Active Substance: LEVOTHYROXINE SODIUM
     Indication: AUTOIMMUNE HYPOTHYROIDISM
     Dosage: 100 MICROGRAM, QD,100 TABLETS
     Route: 048
     Dates: start: 200101

REACTIONS (5)
  - Abdominal pain [Not Recovered/Not Resolved]
  - Vomiting [Not Recovered/Not Resolved]
  - Tremor [Not Recovered/Not Resolved]
  - Fatigue [Not Recovered/Not Resolved]
  - Nausea [Not Recovered/Not Resolved]

NARRATIVE: CASE EVENT DATE: 201610
